FAERS Safety Report 6991738-0 (Version None)
Quarter: 2010Q3

REPORT INFORMATION
  Report Type: 
  Country: None (occurrence: None)
  Receive Date: 20100915
  Receipt Date: 20100915
  Transmission Date: 20110219
  Serious: Yes (Hospitalization, Other)
  Sender: FDA-Public Use
  Company Number: None

PATIENT
  Age: 42 Year
  Sex: Female
  Weight: 62.5964 kg

DRUGS (1)
  1. LOESTRIN 24 FE [Suspect]
     Indication: CONTRACEPTION
     Dosage: 1 PILL DAILY PO
     Route: 048
     Dates: start: 20100615, end: 20100810

REACTIONS (5)
  - BLOOD PRESSURE INCREASED [None]
  - ECONOMIC PROBLEM [None]
  - HEADACHE [None]
  - IMPAIRED WORK ABILITY [None]
  - PAIN [None]
